FAERS Safety Report 7576193-4 (Version None)
Quarter: 2011Q2

REPORT INFORMATION
  Report Type: 
  Country: None (occurrence: None)
  Receive Date: 20110628
  Receipt Date: 20110614
  Transmission Date: 20111010
  Serious: Yes (Hospitalization, Other)
  Sender: FDA-Public Use
  Company Number: US-BAYER-US-2005-014552

PATIENT
  Sex: Female
  Weight: 61.224 kg

DRUGS (11)
  1. AUGMENTIN XR [Concomitant]
     Dosage: UNK
     Dates: start: 20051229
  2. DOXYCYCLINE [Concomitant]
     Dosage: UNK
     Dates: start: 20060111
  3. METOCLOPRAMIDE [Concomitant]
     Dosage: UNK
     Dates: start: 20060223
  4. METRONIDAZOLE [Concomitant]
     Dosage: UNK
     Dates: start: 20060223
  5. YASMIN [Suspect]
     Dosage: UNK
     Dates: start: 20040101, end: 20090101
  6. AMOXICILLIN AND CLAVULANATE POTASSIUM [Concomitant]
     Dosage: UNK
     Dates: start: 20061103
  7. AMOXICILLIN AND CLAVULANATE POTASSIUM [Concomitant]
     Dosage: UNK
     Dates: start: 20050314
  8. OMNICEF [Concomitant]
     Dosage: UNK
     Dates: start: 20061103
  9. ZITHROMAX [Concomitant]
     Dosage: UNK
     Dates: start: 20051105
  10. YASMIN [Suspect]
     Indication: POLYCYSTIC OVARIES
     Dosage: 1 TAB(S), 1X/DAY [DAILY DOSE: 1 TAB(S)]
     Route: 048
     Dates: start: 20030101, end: 20090101
  11. FLEXERIL [Concomitant]
     Dosage: UNK
     Dates: start: 20050909

REACTIONS (4)
  - BILIARY DYSKINESIA [None]
  - CHOLECYSTITIS [None]
  - GALLBLADDER DISORDER [None]
  - ABDOMINAL PAIN UPPER [None]
